FAERS Safety Report 17572380 (Version 1)
Quarter: 2020Q1

REPORT INFORMATION
  Report Type: Spontaneous
  Country: US (occurrence: US)
  Receive Date: 20200323
  Receipt Date: 20200323
  Transmission Date: 20200409
  Serious: No
  Sender: FDA-Public Use
  Company Number: None

PATIENT
  Age: 73 Year
  Sex: Female

DRUGS (2)
  1. PHENOBARBITAL. [Suspect]
     Active Substance: PHENOBARBITAL
     Indication: SEIZURE
     Route: 048
  2. CARVEDILOL 12.5MG BID [Concomitant]

REACTIONS (5)
  - Product substitution issue [None]
  - Throat irritation [None]
  - Tinnitus [None]
  - Pain [None]
  - Oropharyngeal pain [None]

NARRATIVE: CASE EVENT DATE: 20200301
